FAERS Safety Report 6055394-0 (Version None)
Quarter: 2009Q1

REPORT INFORMATION
  Report Type: 
  Country: None (occurrence: None)
  Receive Date: 20090128
  Receipt Date: 20090120
  Transmission Date: 20090719
  Serious: Yes (Hospitalization)
  Sender: FDA-Public Use
  Company Number: DE-JNJFOC-20090104537

PATIENT
  Age: 48 Year
  Sex: Female

DRUGS (1)
  1. TAVANIC [Suspect]
     Indication: BRONCHITIS
     Dosage: A FEW DAYS DURATION
     Route: 048

REACTIONS (4)
  - ANXIETY [None]
  - INSOMNIA [None]
  - PANIC ATTACK [None]
  - TACHYCARDIA [None]
